FAERS Safety Report 9996048 (Version 1)
Quarter: 2014Q1

REPORT INFORMATION
  Report Type: Spontaneous
  Country: BR (occurrence: BR)
  Receive Date: 20140311
  Receipt Date: 20140311
  Transmission Date: 20141002
  Serious: Yes (Other)
  Sender: FDA-Public Use
  Company Number: BR-WATSON-2014-03895

PATIENT
  Age: 44 Year
  Sex: Female

DRUGS (3)
  1. PREGABALIN (UNKNOWN) [Suspect]
     Indication: NEURALGIA
     Dosage: 300 MG, DAILY
     Route: 065
  2. DICLOFENAC [Concomitant]
     Indication: NEURALGIA
     Dosage: 50 MG, TID
     Route: 065
  3. CICLOBENZAPRINA [Concomitant]
     Indication: NEURALGIA
     Dosage: 10 MG, BID
     Route: 065

REACTIONS (4)
  - Psychotic disorder [Recovering/Resolving]
  - Hallucination, visual [Recovering/Resolving]
  - Delirium [Recovering/Resolving]
  - Irritability [Unknown]
